FAERS Safety Report 8408109-2 (Version None)
Quarter: 2012Q2

REPORT INFORMATION
  Report Type: 
  Country: None (occurrence: None)
  Receive Date: 20120604
  Receipt Date: 20120522
  Transmission Date: 20120825
  Serious: Yes (Death, Hospitalization, Other)
  Sender: FDA-Public Use
  Company Number: FR-BRISTOL-MYERS SQUIBB COMPANY-16613556

PATIENT
  Age: 66 Year
  Sex: Female

DRUGS (6)
  1. MIRTAZAPINE [Concomitant]
  2. PENTOXIFYLLINE [Suspect]
     Indication: ANTICOAGULANT THERAPY
     Dosage: 1 DF= QUARTER OF TABLET PER DAY
  3. SOTALOL HCL [Concomitant]
  4. ABILIFY [Suspect]
     Indication: AFFECTIVE DISORDER
     Route: 048
  5. NEO-MERCAZOLE TAB [Concomitant]
     Dosage: NEO-MERCAZOLE
  6. DEPAKOTE [Concomitant]

REACTIONS (3)
  - HAEMORRHAGE [None]
  - DEATH [None]
  - DIZZINESS [None]
